FAERS Safety Report 5633308-2 (Version None)
Quarter: 2008Q1

REPORT INFORMATION
  Report Type: 
  Country: None (occurrence: None)
  Receive Date: 20080221
  Receipt Date: 20080215
  Transmission Date: 20080703
  Serious: Yes (Other)
  Sender: FDA-Public Use
  Company Number: US-BRISTOL-MYERS SQUIBB COMPANY-14067151

PATIENT
  Age: 61 Year
  Sex: Female
  Weight: 159 kg

DRUGS (11)
  1. ORENCIA [Suspect]
     Indication: RHEUMATOID ARTHRITIS
     Dosage: THE LAST INFUSION WAS ADMINISTERED ON 04-FEB-2008.
     Route: 042
  2. METHOTREXATE [Suspect]
     Dates: start: 19970101, end: 20080101
  3. DICLOFENAC SODIUM [Concomitant]
     Dates: start: 19970101
  4. FOLIC ACID [Concomitant]
     Dates: start: 19970101
  5. DETROL LA [Concomitant]
  6. POTASSIUM CHLORIDE [Concomitant]
  7. MULTI-VITAMIN [Concomitant]
     Dates: start: 20000101
  8. OS-CAL [Concomitant]
     Dates: start: 19970101
  9. VITAMIN E [Concomitant]
     Dates: start: 20000101
  10. PLAQUENIL [Concomitant]
     Dates: start: 19970101
  11. BOLDINE [Concomitant]

REACTIONS (5)
  - ABDOMINAL PAIN UPPER [None]
  - BLADDER CANCER [None]
  - DYSPEPSIA [None]
  - LIVER FUNCTION TEST ABNORMAL [None]
  - NEPHROLITHIASIS [None]
